FAERS Safety Report 9532229 (Version 1)
Quarter: 2013Q3

REPORT INFORMATION
  Report Type: Spontaneous
  Country: US (occurrence: None)
  Receive Date: 20130916
  Receipt Date: 20130916
  Transmission Date: 20140515
  Serious: Yes (Other)
  Sender: FDA-Public Use
  Company Number: 1243639

PATIENT
  Age: 76 Year
  Sex: Female

DRUGS (1)
  1. TAMOXIFEN [Suspect]
     Indication: BREAST CANCER

REACTIONS (3)
  - Inflammatory myofibroblastic tumour [None]
  - Vaginal neoplasm [None]
  - Free prostate-specific antigen positive [None]
